FAERS Safety Report 7412042-2 (Version None)
Quarter: 2011Q2

REPORT INFORMATION
  Report Type: 
  Country: None (occurrence: None)
  Receive Date: 20110413
  Receipt Date: 20110404
  Transmission Date: 20111010
  Serious: Yes (Hospitalization)
  Sender: FDA-Public Use
  Company Number: FR-EISAI INC-E3810-04594-SPO-FR

PATIENT
  Sex: Female

DRUGS (2)
  1. ACUPAN [Suspect]
     Route: 048
     Dates: start: 20110116, end: 20110129
  2. PARIET (RABEPRAZOLE) [Suspect]
     Route: 048
     Dates: start: 20110107, end: 20110202

REACTIONS (1)
  - NEUTROPENIA [None]
